FAERS Safety Report 9101713 (Version 1)
Quarter: 2013Q1

REPORT INFORMATION
  Report Type: Spontaneous
  Country: US (occurrence: None)
  Receive Date: 20130220
  Receipt Date: 20130220
  Transmission Date: 20140127
  Serious: Yes (Other)
  Sender: FDA-Public Use
  Company Number: None

PATIENT
  Age: 48 Year
  Sex: Male
  Weight: 90.72 kg

DRUGS (1)
  1. CIPROFLOXACIN [Suspect]
     Route: 048
     Dates: start: 20130204, end: 20130214

REACTIONS (6)
  - Erythema [None]
  - Burning sensation [None]
  - Pruritus [None]
  - Pain in extremity [None]
  - Feeling abnormal [None]
  - Pain in extremity [None]
